FAERS Safety Report 16690036 (Version 3)
Quarter: 2019Q3

REPORT INFORMATION
  Report Type: Report from Study
  Country: JP (occurrence: JP)
  Receive Date: 20190809
  Receipt Date: 20190909
  Transmission Date: 20191004
  Serious: Yes (Hospitalization)
  Sender: FDA-Public Use
  Company Number: JP-BRISTOL-MYERS SQUIBB COMPANY-BMS-2019-077537

PATIENT
  Age: 75 Year
  Sex: Female
  Weight: 68 kg

DRUGS (5)
  1. CALONAL [Concomitant]
     Active Substance: ACETAMINOPHEN
     Indication: CANCER PAIN
     Dosage: 500 MG, Q8H, AFTER MEAL
     Route: 048
     Dates: start: 20190612
  2. ROZEX [RESCINNAMINE] [Concomitant]
     Indication: INFECTION PROPHYLAXIS
     Dosage: UNK, EVERY DAY
     Route: 061
     Dates: start: 20190717
  3. NIVOLUMAB [Suspect]
     Active Substance: NIVOLUMAB
     Indication: MALIGNANT NEOPLASM OF UNKNOWN PRIMARY SITE
     Dosage: 240 MILLIGRAM, Q2WK
     Route: 041
     Dates: start: 20190620, end: 20190717
  4. ZINC OXIDE. [Concomitant]
     Active Substance: ZINC OXIDE
     Indication: SKIN DISORDER PROPHYLAXIS
     Dosage: UNK, EVERYDAY
     Route: 061
     Dates: start: 20170717
  5. AMLODIPINE [Concomitant]
     Active Substance: AMLODIPINE BESYLATE
     Indication: HYPERTENSION
     Dosage: 2.5 MG, EVERYDAY, AFTER BREAKFAST
     Route: 048
     Dates: start: 20190121

REACTIONS (1)
  - Skin ulcer [Recovering/Resolving]

NARRATIVE: CASE EVENT DATE: 20190717
